FAERS Safety Report 8366938-8 (Version None)
Quarter: 2012Q2

REPORT INFORMATION
  Report Type: 
  Country: None (occurrence: None)
  Receive Date: 20120517
  Receipt Date: 20120507
  Transmission Date: 20120825
  Serious: No
  Sender: FDA-Public Use
  Company Number: US-ASTRAZENECA-2012SE29592

PATIENT
  Age: 64 Year
  Sex: Female
  Weight: 120.2 kg

DRUGS (6)
  1. ALLOPURINOL [Concomitant]
     Indication: GOUTY ARTHRITIS
  2. LISINOPRIL [Concomitant]
     Indication: HYPERTENSION
  3. NEXIUM [Suspect]
     Indication: GASTROOESOPHAGEAL REFLUX DISEASE
     Route: 048
  4. NEXIUM [Suspect]
     Route: 048
  5. FUROSEMIDE [Concomitant]
     Indication: HYPERTENSION
  6. KLOR-CON [Concomitant]
     Indication: MINERAL SUPPLEMENTATION

REACTIONS (4)
  - GOUTY ARTHRITIS [None]
  - POLYP [None]
  - OFF LABEL USE [None]
  - HYPERTENSION [None]
